FAERS Safety Report 25757337 (Version 2)
Quarter: 2025Q4

REPORT INFORMATION
  Report Type: Spontaneous
  Country: US (occurrence: US)
  Receive Date: 20250903
  Receipt Date: 20251003
  Transmission Date: 20260117
  Serious: No
  Sender: MYLAN
  Company Number: US-MYLANLABS-2025M1070890

PATIENT
  Age: 63 Year
  Sex: Female
  Weight: 54.43 kg

DRUGS (4)
  1. TYRVAYA [Suspect]
     Active Substance: VARENICLINE TARTRATE
     Indication: Dry eye
     Dosage: 0.03 MILLIGRAM, BID (ONE SPRAY PER NOSE TWICE DAILY)
     Dates: start: 202411
  2. TYRVAYA [Suspect]
     Active Substance: VARENICLINE TARTRATE
     Dosage: 0.03 MILLIGRAM, BID (ONE SPRAY PER NOSE TWICE DAILY)
     Dates: end: 20250812
  3. CALCIUM [Concomitant]
     Active Substance: CALCIUM
     Dosage: UNK
  4. VITAMIN C [Concomitant]
     Active Substance: ASCORBIC ACID
     Dosage: UNK

REACTIONS (3)
  - Nasal crusting [Recovering/Resolving]
  - Nasal ulcer [Recovering/Resolving]
  - Nasal discomfort [Recovering/Resolving]

NARRATIVE: CASE EVENT DATE: 20250701
